FAERS Safety Report 8315404-4 (Version None)
Quarter: 2012Q2

REPORT INFORMATION
  Report Type: 
  Country: None (occurrence: None)
  Receive Date: 20120426
  Receipt Date: 20120416
  Transmission Date: 20120825
  Serious: Yes (Other)
  Sender: FDA-Public Use
  Company Number: ES-JNJFOC-20120408681

PATIENT
  Sex: Female
  Weight: 52 kg

DRUGS (9)
  1. GOLIMUMAB [Suspect]
     Dosage: WEEK 52 - WEEK 220
     Route: 058
     Dates: start: 20080403, end: 20110802
  2. METHOTREXATE [Concomitant]
     Route: 048
     Dates: start: 20090411, end: 20101015
  3. FOLIC ACID [Concomitant]
     Indication: DRUG TOXICITY PROPHYLAXIS
     Route: 048
     Dates: start: 20080407
  4. METHOTREXATE [Suspect]
     Indication: RHEUMATOID ARTHRITIS
     Route: 048
     Dates: start: 20070412, end: 20080626
  5. METHOTREXATE [Concomitant]
     Route: 048
     Dates: start: 20110111, end: 20110801
  6. METHOTREXATE [Concomitant]
     Route: 048
     Dates: start: 20080703, end: 20090318
  7. METHOTREXATE [Concomitant]
     Route: 048
     Dates: start: 20101016, end: 20110110
  8. ACTONEL [Concomitant]
     Indication: OSTEOPOROSIS
     Route: 048
     Dates: start: 20061212
  9. GOLIMUMAB [Suspect]
     Indication: RHEUMATOID ARTHRITIS
     Dosage: WEEK 24
     Route: 058
     Dates: start: 20070927

REACTIONS (1)
  - BOWEN'S DISEASE [None]
